FAERS Safety Report 14549608 (Version 1)
Quarter: 2018Q1

REPORT INFORMATION
  Report Type: Spontaneous
  Country: US (occurrence: US)
  Receive Date: 20180219
  Receipt Date: 20180219
  Transmission Date: 20180509
  Serious: No
  Sender: FDA-Public Use
  Company Number: US-BAUSCH-BL-2017-031104

PATIENT
  Sex: Female

DRUGS (1)
  1. SULFACETAMIDE SODIUM AND PREDNISOLONE SODIUM PHOSPHATE OPHTHALMIC SOLU [Suspect]
     Active Substance: PREDNISOLONE SODIUM PHOSPHATE\SULFACETAMIDE SODIUM
     Indication: PRODUCT USED FOR UNKNOWN INDICATION
     Route: 001

REACTIONS (1)
  - Incorrect route of drug administration [Unknown]
